FAERS Safety Report 6040985-3 (Version None)
Quarter: 2009Q1

REPORT INFORMATION
  Report Type: 
  Country: None (occurrence: None)
  Receive Date: 20090116
  Receipt Date: 20080717
  Transmission Date: 20090719
  Serious: No
  Sender: FDA-Public Use
  Company Number: US-BRISTOL-MYERS SQUIBB COMPANY-14266993

PATIENT
  Age: 42 Year
  Sex: Female

DRUGS (3)
  1. ABILIFY [Suspect]
     Indication: BIPOLAR DISORDER
     Dosage: STARTED AS 5 MG TITRATED UPTO 30MG BYJAN08, THEN TITRATED DOWN TO 10MG STARTING 16JUN08;
     Dates: start: 20051201
  2. CARBAMAZEPINE [Concomitant]
  3. QUETIAPINE FUMARATE [Concomitant]

REACTIONS (2)
  - DEPRESSION [None]
  - TARDIVE DYSKINESIA [None]
